FAERS Safety Report 9549986 (Version 2)
Quarter: 2014Q1

REPORT INFORMATION
  Report Type: Report from Study
  Country: US (occurrence: US)
  Receive Date: 20130924
  Receipt Date: 20140102
  Transmission Date: 20141002
  Serious: Yes (Life-Threatening, Hospitalization, Other)
  Sender: FDA-Public Use
  Company Number: US-UCBSA-097804

PATIENT
  Age: 32 Year
  Sex: Female

DRUGS (3)
  1. KEPPRA [Suspect]
     Indication: EPILEPSY
     Dosage: 3000 MG
     Dates: start: 20130103, end: 201304
  2. KEPPRA [Suspect]
     Indication: EPILEPSY
     Dosage: 3375 MG
     Dates: start: 201304
  3. LEVOTHYROXINE [Concomitant]
     Indication: HYPOTHYROIDISM

REACTIONS (5)
  - Premature delivery [Unknown]
  - HELLP syndrome [Unknown]
  - Overdose [Unknown]
  - Pregnancy [Recovered/Resolved]
  - Obesity [Unknown]
